FAERS Safety Report 23318100 (Version 1)
Quarter: 2023Q4

REPORT INFORMATION
  Report Type: Other
  Country: None (occurrence: US)
  Receive Date: 20231219
  Receipt Date: 20231219
  Transmission Date: 20240110
  Serious: Yes (Other)
  Sender: FDA-Public Use
  Company Number: US-Appco Pharma LLC-2149562

PATIENT
  Age: 37 Year
  Sex: Female

DRUGS (6)
  1. HYDROXYCHLOROQUINE SULFATE [Suspect]
     Active Substance: HYDROXYCHLOROQUINE SULFATE
     Indication: Chronic cutaneous lupus erythematosus
     Route: 065
  2. MYCOPHENOLATE MOFETIL [Suspect]
     Active Substance: MYCOPHENOLATE MOFETIL
     Route: 065
  3. METHOTREXATE [Suspect]
     Active Substance: METHOTREXATE
     Route: 065
  4. DAPSONE [Suspect]
     Active Substance: DAPSONE
     Route: 065
  5. BELIMUMAB [Suspect]
     Active Substance: BELIMUMAB
     Route: 065
  6. CHLOROQUINE [Suspect]
     Active Substance: CHLOROQUINE
     Route: 065

REACTIONS (1)
  - Treatment failure [Unknown]
